FAERS Safety Report 23110324 (Version 1)
Quarter: 2023Q4

REPORT INFORMATION
  Report Type: Report from Study
  Country: CO (occurrence: CO)
  Receive Date: 20231026
  Receipt Date: 20231026
  Transmission Date: 20240110
  Serious: Yes (Hospitalization)
  Sender: FDA-Public Use
  Company Number: CO-HBP-2023CO029961

PATIENT
  Age: 85 Year
  Sex: Male
  Weight: 88 kg

DRUGS (5)
  1. MECHLORETHAMINE HYDROCHLORIDE [Suspect]
     Active Substance: MECHLORETHAMINE HYDROCHLORIDE
     Indication: Cutaneous T-cell lymphoma
     Dosage: UNK, ONE APPLICATION EVERY 24 HOURS
     Route: 065
     Dates: start: 20230919, end: 20231014
  2. BETAMETHASONE [Concomitant]
     Active Substance: BETAMETHASONE
     Indication: Cutaneous T-cell lymphoma
     Dosage: UNK, ONE APPLICATION EVERY 12 HOURS
  3. CHLORAMBUCIL [Concomitant]
     Active Substance: CHLORAMBUCIL
     Indication: Cutaneous T-cell lymphoma
     Dosage: 4 MILLIGRAM, Q2H
     Route: 048
  4. GABAPENTIN [Concomitant]
     Active Substance: GABAPENTIN
     Indication: Deep vein thrombosis
     Dosage: 300 MILLIGRAM, UNKNOWN
     Route: 048
  5. PREDNISOLONE [Concomitant]
     Active Substance: PREDNISOLONE
     Indication: Cardiac disorder
     Dosage: 10 MILLIGRAM, UNKNOWN
     Route: 048

REACTIONS (3)
  - Fluid retention [Recovering/Resolving]
  - Off label use [Unknown]
  - Intentional dose omission [Unknown]

NARRATIVE: CASE EVENT DATE: 20230919
